FAERS Safety Report 5006569-0 (Version None)
Quarter: 2006Q2

REPORT INFORMATION
  Report Type: 
  Country: None (occurrence: None)
  Receive Date: 20060519
  Receipt Date: 20060209
  Transmission Date: 20061013
  Serious: No
  Sender: FDA-Public Use
  Company Number: 2006PK00770

PATIENT
  Age: 49 Year
  Sex: Female

DRUGS (13)
  1. SEROQUEL [Suspect]
     Indication: BIPOLAR DISORDER
     Route: 048
     Dates: start: 20051122, end: 20051124
  2. SEROQUEL [Suspect]
     Route: 048
     Dates: start: 20051125, end: 20051128
  3. SEROQUEL [Suspect]
     Route: 048
     Dates: start: 20051129, end: 20051130
  4. SEROQUEL [Suspect]
     Route: 048
     Dates: start: 20051201, end: 20051204
  5. SEROQUEL [Suspect]
     Route: 048
     Dates: start: 20051205, end: 20051205
  6. SEROQUEL [Suspect]
     Route: 048
     Dates: start: 20051206, end: 20060104
  7. SEROQUEL [Suspect]
     Route: 048
     Dates: start: 20060105
  8. LAMICTAL [Concomitant]
     Indication: BIPOLAR DISORDER
     Route: 048
     Dates: start: 20051208, end: 20051221
  9. LAMICTAL [Concomitant]
     Route: 048
     Dates: start: 20051222, end: 20060104
  10. LAMICTAL [Concomitant]
     Route: 048
     Dates: start: 20060105, end: 20060117
  11. LAMICTAL [Concomitant]
     Route: 048
     Dates: start: 20060118
  12. ZOLOFT [Concomitant]
     Indication: BIPOLAR DISORDER
     Route: 048
     Dates: start: 20051229, end: 20060112
  13. ZOLOFT [Concomitant]
     Route: 048
     Dates: start: 20060113

REACTIONS (1)
  - THROMBOCYTOPENIA [None]
